FAERS Safety Report 14711094 (Version 1)
Quarter: 2018Q2

REPORT INFORMATION
  Report Type: Spontaneous
  Country: US (occurrence: US)
  Receive Date: 20180403
  Receipt Date: 20180403
  Transmission Date: 20180711
  Serious: No
  Sender: FDA-Public Use
  Company Number: US-009507513-1803USA004115

PATIENT
  Age: 17 Year
  Sex: Female

DRUGS (2)
  1. SINEMET [Suspect]
     Active Substance: CARBIDOPA\LEVODOPA
     Indication: MOVEMENT DISORDER
     Dosage: 10-100 MG ONE HOUR PRIOR TO STARTING THERAPIES
     Route: 048
  2. SINEMET [Suspect]
     Active Substance: CARBIDOPA\LEVODOPA
     Dosage: 10-100 MG DOSING ONE PRIOR TO MORNING THERAPIES AND ONE PRIOR TO AFTERNOON THE
     Route: 048

REACTIONS (1)
  - Off label use [Unknown]
